FAERS Safety Report 18954151 (Version 4)
Quarter: 2022Q3

REPORT INFORMATION
  Report Type: Spontaneous
  Country: GR (occurrence: GR)
  Receive Date: 20210301
  Receipt Date: 20220804
  Transmission Date: 20221027
  Serious: Yes (Other)
  Sender: FDA-Public Use
  Company Number: GR-GSKCCFEMEA-CASE-01143949_AE-40525

PATIENT

DRUGS (1)
  1. WELLBUTRIN XL [Suspect]
     Active Substance: BUPROPION HYDROCHLORIDE
     Indication: Schizophrenia
     Dosage: UNK

REACTIONS (7)
  - Apnoea [Unknown]
  - Sexual activity increased [Unknown]
  - Insomnia [Unknown]
  - Testicular disorder [Unknown]
  - Therapeutic response unexpected [Unknown]
  - Product use in unapproved indication [Unknown]
  - Product prescribing issue [Unknown]
